FAERS Safety Report 15511042 (Version 1)
Quarter: 2018Q4

REPORT INFORMATION
  Report Type: Spontaneous
  Country: US (occurrence: US)
  Receive Date: 20181016
  Receipt Date: 20181016
  Transmission Date: 20190205
  Serious: No
  Sender: FDA-Public Use
  Company Number: US-AMGEN-USASP2018030167

PATIENT
  Age: 54 Year
  Sex: Female
  Weight: 80 kg

DRUGS (19)
  1. EMEND [Concomitant]
     Active Substance: APREPITANT
     Dosage: 150 MG, Q3WK
     Route: 042
  2. DIPHENHYDRAMINE. [Concomitant]
     Active Substance: DIPHENHYDRAMINE
     Dosage: 25 MG, UNK
     Route: 042
  3. DECADRON [Concomitant]
     Active Substance: DEXAMETHASONE
     Dosage: UNK (5 TABS IN MORNING)
     Dates: start: 20180301, end: 20180301
  4. PACLITAXEL. [Concomitant]
     Active Substance: PACLITAXEL
     Indication: UTERINE CANCER
     Dosage: UNK UNK, Q3WK
  5. EMLA [Concomitant]
     Active Substance: LIDOCAINE\PRILOCAINE
     Indication: CENTRAL VENOUS CATHETERISATION
     Dosage: UNK
  6. ONDANSETRON [Concomitant]
     Active Substance: ONDANSETRON
     Dosage: 8 MG, UNK
     Route: 042
  7. PEPCID [Concomitant]
     Active Substance: FAMOTIDINE
     Dosage: 20 MG, UNK
     Route: 042
  8. DECADRON [Concomitant]
     Active Substance: DEXAMETHASONE
     Dosage: UNK (5 TABS IN NIGHT)
     Dates: start: 20180228, end: 20180228
  9. NEULASTA [Suspect]
     Active Substance: PEGFILGRASTIM
     Indication: WHITE BLOOD CELL COUNT DECREASED
     Dosage: (6 MG/ 0.6 ML), Q3WK
     Route: 058
  10. TAXOL [Concomitant]
     Active Substance: PACLITAXEL
     Indication: UTERINE CANCER
     Dosage: 324 MG, UNK (FLUID VOLUME 500) NSS (NORMAL SALINE SOLUTION)
     Route: 042
  11. HEPARIN [Concomitant]
     Active Substance: HEPARIN SODIUM
     Indication: CENTRAL VENOUS CATHETERISATION
     Dosage: 5 ML, (100UNITS/ML) UNK
  12. NEULASTA [Suspect]
     Active Substance: PEGFILGRASTIM
     Dosage: (6 MG/ 0.6 ML), Q3WK
     Route: 058
  13. CARBOPLATIN. [Concomitant]
     Active Substance: CARBOPLATIN
     Indication: UTERINE CANCER
     Dosage: 688 MG, Q3WK (FLUID VOLUME: 500) NSS
     Route: 042
  14. DEXAMETHASONE. [Concomitant]
     Active Substance: DEXAMETHASONE
     Dosage: 4 MG, UNK (TAKE 5 TABLETS, THE NIGHT BEFORE AND THE MORNING OF CHEMOTHERAPY)
     Route: 048
  15. DEXAMETHASONE. [Concomitant]
     Active Substance: DEXAMETHASONE
     Dosage: 10 MG, UNK
     Route: 042
  16. LIDOCAINE/PRILOCAINE [Concomitant]
     Active Substance: LIDOCAINE\PRILOCAINE
     Dosage: UNK
     Route: 061
  17. CLARITIN [Concomitant]
     Active Substance: LORATADINE
     Dosage: 10 MG, UNK
     Dates: start: 20180301
  18. ZOFRAN [Concomitant]
     Active Substance: ONDANSETRON HYDROCHLORIDE
     Indication: PROPHYLAXIS
     Dosage: 8 MG, AS NECESSARY (EVERY 8 HOURS)
     Route: 048
  19. PROCHLORPERAZINE MALEATE. [Concomitant]
     Active Substance: PROCHLORPERAZINE MALEATE
     Indication: PROPHYLAXIS
     Dosage: 5 MG, AS NECESSARY (EVERY 6 HOURS)
     Route: 048

REACTIONS (5)
  - Catheter site swelling [Unknown]
  - Impaired work ability [Unknown]
  - Catheter site bruise [Unknown]
  - Wrong technique in product usage process [Unknown]
  - Exercise tolerance decreased [Unknown]

NARRATIVE: CASE EVENT DATE: 2018
